FAERS Safety Report 4890061-8 (Version None)
Quarter: 2006Q1

REPORT INFORMATION
  Report Type: 
  Country: None (occurrence: None)
  Receive Date: 20060120
  Receipt Date: 20060113
  Transmission Date: 20060701
  Serious: Yes (Hospitalization)
  Sender: FDA-Public Use
  Company Number: 11817

PATIENT
  Age: 58 Year
  Sex: Male

DRUGS (15)
  1. METHOTREXATE [Suspect]
     Indication: LYMPHOMA
     Dosage: 12.6 MG DAILY IV
     Route: 042
     Dates: start: 20050316, end: 20050321
  2. CYCLOSPORINE [Suspect]
     Indication: LYMPHOMA
     Dosage: 30 MG DAILY PO
     Route: 048
     Dates: start: 20050418
  3. FLUDARABINE PHOSPHATE [Suspect]
     Indication: LYMPHOMA
     Dosage: 54 MG DAILY IV
     Route: 042
     Dates: start: 20050307, end: 20050312
  4. BUSULFAN [Suspect]
     Indication: LYMPHOMA
     Dosage: 284 MG DAILY PO
     Route: 048
     Dates: start: 20050309, end: 20050310
  5. BASEN [Concomitant]
  6. SELBEX [Concomitant]
  7. NORVASC [Concomitant]
  8. GASTER D [Concomitant]
  9. ZOVIRAX [Concomitant]
  10. AMARYL [Concomitant]
  11. URSO [Concomitant]
  12. FARUM [Concomitant]
  13. BIOFERMIN R [Concomitant]
  14. THYRADIN S [Concomitant]
  15. NEORAL [Concomitant]

REACTIONS (2)
  - PLEURISY [None]
  - PNEUMONIA [None]
